FAERS Safety Report 9068653 (Version 1)
Quarter: 2013Q1

REPORT INFORMATION
  Report Type: Spontaneous
  Country: US (occurrence: US)
  Receive Date: 20130128
  Receipt Date: 20130128
  Transmission Date: 20140127
  Serious: Yes (Hospitalization)
  Sender: FDA-Public Use
  Company Number: US-ASTRAZENECA-2013SE04005

PATIENT
  Sex: 0

DRUGS (1)
  1. TOPROL XL [Suspect]
     Route: 048

REACTIONS (5)
  - Blood sodium decreased [Unknown]
  - Upper respiratory tract infection [Unknown]
  - Ear discomfort [Unknown]
  - Dry throat [Unknown]
  - Dizziness [Unknown]
